FAERS Safety Report 7559806-2 (Version None)
Quarter: 2011Q2

REPORT INFORMATION
  Report Type: 
  Country: None (occurrence: None)
  Receive Date: 20110621
  Receipt Date: 20110609
  Transmission Date: 20111010
  Serious: Yes (Hospitalization)
  Sender: FDA-Public Use
  Company Number: DE-ROCHE-783336

PATIENT
  Sex: Female
  Weight: 57 kg

DRUGS (3)
  1. IRINOTECAN HYDROCHLORIDE [Concomitant]
     Indication: COLON CANCER
     Dosage: 2ND CYCLE ON 6 JUN 2011, ACCORDING 200 MG/M2
     Route: 042
  2. CAPECITABINE [Concomitant]
     Indication: COLON CANCER
     Route: 048
     Dates: start: 20110606
  3. BEVACIZUMAB [Suspect]
     Indication: COLON CANCER
     Dosage: 2ND CYCLE ON 6 JUN 2011, ACCORDING 7.5 MG/KG
     Route: 042
     Dates: end: 20110606

REACTIONS (2)
  - CEREBROVASCULAR ACCIDENT [None]
  - HEMIPARESIS [None]
